FAERS Safety Report 11400809 (Version 12)
Quarter: 2018Q2

REPORT INFORMATION
  Report Type: Spontaneous
  Country: US (occurrence: US)
  Receive Date: 20150820
  Receipt Date: 20180504
  Transmission Date: 20180711
  Serious: Yes (Hospitalization)
  Sender: FDA-Public Use
  Company Number: US-ACTELION PHARMACEUTICALS US, INC.-A-NJ2015-122394

PATIENT
  Age: 28 Year
  Sex: Female
  Weight: 57.6 kg

DRUGS (6)
  1. OPSUMIT [Suspect]
     Active Substance: MACITENTAN
     Dosage: UNK
     Route: 048
  2. ADCIRCA [Concomitant]
     Active Substance: TADALAFIL
  3. REMODULIN [Suspect]
     Active Substance: TREPROSTINIL
     Indication: PRODUCT USED FOR UNKNOWN INDICATION
     Route: 042
  4. COUMADIN [Concomitant]
     Active Substance: WARFARIN SODIUM
  5. TREPROSTINIL DIOLAMIN [Concomitant]
     Active Substance: TREPROSTINIL DIOLAMINE
  6. OPSUMIT [Suspect]
     Active Substance: MACITENTAN
     Indication: PULMONARY HYPERTENSION
     Dosage: 10 MG, QD
     Route: 048
     Dates: start: 20150601

REACTIONS (18)
  - Catheter site rash [Unknown]
  - Catheter site pain [Unknown]
  - Headache [Unknown]
  - Urticaria [Unknown]
  - Dysphonia [Unknown]
  - Abdominal pain upper [Unknown]
  - Disease progression [Unknown]
  - Catheter site infection [Unknown]
  - Pain [Unknown]
  - Rash papular [Unknown]
  - Pulmonary hypertension [Unknown]
  - Rash [Unknown]
  - Cellulitis [Unknown]
  - Pruritus [Unknown]
  - Diarrhoea [Unknown]
  - Pulmonary pain [Recovering/Resolving]
  - Device leakage [Recovering/Resolving]
  - Thrombosis in device [Recovering/Resolving]

NARRATIVE: CASE EVENT DATE: 20180420
